FAERS Safety Report 9128646 (Version 2)
Quarter: 2013Q2

REPORT INFORMATION
  Report Type: Spontaneous
  Country: RS (occurrence: RS)
  Receive Date: 20130228
  Receipt Date: 20130628
  Transmission Date: 20140414
  Serious: No
  Sender: FDA-Public Use
  Company Number: RS-ASTRAZENECA-2013SE11596

PATIENT
  Sex: Female

DRUGS (6)
  1. SYMBICORT [Suspect]
     Indication: ASTHMA
     Dosage: 160 + 4.5 MCG PER DOSE TWICE A DAY
     Route: 055
  2. GLIMEPIRIDE [Concomitant]
  3. LEVOTHYROXINE [Concomitant]
  4. METHYLDOPA [Concomitant]
  5. NIFEDIPINE [Concomitant]
  6. BISOPROLOL [Concomitant]

REACTIONS (3)
  - Choking sensation [Recovered/Resolved]
  - Swollen tongue [Recovered/Resolved]
  - Cough [Recovered/Resolved]
